FAERS Safety Report 25943601 (Version 1)
Quarter: 2025Q4

REPORT INFORMATION
  Report Type: Spontaneous
  Country: EU (occurrence: EU)
  Receive Date: 20251021
  Receipt Date: 20251021
  Transmission Date: 20260118
  Serious: Yes (Other)
  Sender: GE HEALTHCARE
  Company Number: None

PATIENT
  Age: 37 Year
  Sex: Female

DRUGS (7)
  1. OMNIPAQUE [Interacting]
     Active Substance: IOHEXOL
     Indication: Pelvic vein embolisation
     Dosage: 80 ML, TOTAL
     Route: 042
     Dates: start: 20231021, end: 20231021
  2. OMNIPAQUE [Interacting]
     Active Substance: IOHEXOL
     Dosage: 1 ML, TOTAL
     Route: 042
     Dates: start: 20240621, end: 20240621
  3. VISIPAQUE [Interacting]
     Active Substance: IODIXANOL
     Indication: Pelvic vein embolisation
     Dosage: 130 ML, TOTAL
     Route: 042
     Dates: start: 20190712, end: 20190712
  4. VISIPAQUE [Interacting]
     Active Substance: IODIXANOL
     Dosage: 72 ML, TOTAL
     Route: 042
     Dates: start: 20231010, end: 20231010
  5. VISIPAQUE [Interacting]
     Active Substance: IODIXANOL
     Dosage: 130 ML, TOTAL
     Route: 042
     Dates: start: 20240621, end: 20240621
  6. LIPIODOL [Interacting]
     Active Substance: ETHIODIZED OIL
     Indication: Pelvic vein embolisation
     Dosage: 4 ML, TOTAL
     Route: 042
     Dates: start: 20231010, end: 20231010
  7. LIPIODOL [Interacting]
     Active Substance: ETHIODIZED OIL
     Dosage: 2 ML, TOTAL
     Route: 042
     Dates: start: 20240621, end: 20240621

REACTIONS (2)
  - Drug interaction [Not Recovered/Not Resolved]
  - Hyperthyroidism [Not Recovered/Not Resolved]

NARRATIVE: CASE EVENT DATE: 20250801
